FAERS Safety Report 21316128 (Version 1)
Quarter: 2022Q3

REPORT INFORMATION
  Report Type: Spontaneous
  Country: US (occurrence: US)
  Receive Date: 20220910
  Receipt Date: 20220910
  Transmission Date: 20221026
  Serious: Yes (Other)
  Sender: FDA-Public Use
  Company Number: US-NOVARTISTESTPH-NVSC2022US203054

PATIENT
  Sex: Female

DRUGS (1)
  1. TABRECTA [Suspect]
     Active Substance: CAPMATINIB
     Indication: Lung neoplasm malignant
     Dosage: UNK
     Route: 065
     Dates: end: 20220729

REACTIONS (4)
  - Lung neoplasm malignant [Unknown]
  - Malignant neoplasm progression [Unknown]
  - Hepatic enzyme increased [Unknown]
  - Peripheral swelling [Unknown]
